FAERS Safety Report 5630459-3 (Version None)
Quarter: 2008Q1

REPORT INFORMATION
  Report Type: 
  Country: None (occurrence: None)
  Receive Date: 20080219
  Receipt Date: 20080214
  Transmission Date: 20080703
  Serious: Yes (Life-Threatening, Hospitalization)
  Sender: FDA-Public Use
  Company Number: GB-WYE-G01069208

PATIENT
  Sex: Male

DRUGS (2)
  1. GEMTUZUMAB OZOGAMICIN [Suspect]
     Dosage: UNKNOWN
     Dates: start: 20080129, end: 20080205
  2. CYTARABINE [Suspect]
     Dosage: UNKNOWN
     Dates: start: 20080129, end: 20080205

REACTIONS (4)
  - HYPOTENSION [None]
  - NEUTROPENIC SEPSIS [None]
  - OXYGEN SATURATION DECREASED [None]
  - RENAL FAILURE ACUTE [None]
